FAERS Safety Report 7397077-0 (Version None)
Quarter: 2011Q2

REPORT INFORMATION
  Report Type: 
  Country: None (occurrence: None)
  Receive Date: 20110406
  Receipt Date: 20110329
  Transmission Date: 20111010
  Serious: Yes (Hospitalization)
  Sender: FDA-Public Use
  Company Number: A0773284A

PATIENT
  Age: 59 Year
  Sex: Male
  Weight: 68.2 kg

DRUGS (1)
  1. AVANDIA [Suspect]
     Route: 048
     Dates: start: 20000101, end: 20070101

REACTIONS (3)
  - RENAL FAILURE [None]
  - CARDIAC FAILURE CONGESTIVE [None]
  - MYOCARDIAL INFARCTION [None]
